FAERS Safety Report 4563352-8 (Version None)
Quarter: 2005Q1

REPORT INFORMATION
  Report Type: 
  Country: None (occurrence: None)
  Receive Date: 20050128
  Receipt Date: 20040210
  Transmission Date: 20050727
  Serious: No
  Sender: FDA-Public Use
  Company Number: US-GLAXOSMITHKLINE-A0497762A

PATIENT
  Sex: Female

DRUGS (2)
  1. WELLBUTRIN [Suspect]
     Indication: DEPRESSION
     Route: 048
  2. SSRI [Concomitant]

REACTIONS (3)
  - NAUSEA [None]
  - SEXUAL DYSFUNCTION [None]
  - WEIGHT INCREASED [None]
